FAERS Safety Report 4767156-2 (Version None)
Quarter: 2005Q3

REPORT INFORMATION
  Report Type: 
  Country: None (occurrence: None)
  Receive Date: 20050913
  Receipt Date: 20050909
  Transmission Date: 20060218
  Serious: Yes (Other)
  Sender: FDA-Public Use
  Company Number: PHBS2005BE13220

PATIENT
  Age: 73 Year
  Sex: Male

DRUGS (5)
  1. RITALIN [Suspect]
     Dosage: 450 MG/DAY (45X10)
     Route: 048
  2. RITALIN [Suspect]
     Dosage: CRUSHED TABLETS IV
     Route: 042
     Dates: start: 19880101
  3. RITALIN [Suspect]
     Route: 065
  4. METHADONE HCL [Concomitant]
     Dosage: 35 MG/DAY
  5. CODEINE [Concomitant]
     Dosage: 150 MG/DAY (10X15 MG)

REACTIONS (3)
  - AMNESIA [None]
  - DRUG ABUSER [None]
  - SEPSIS [None]
